FAERS Safety Report 16296888 (Version 1)
Quarter: 2019Q2

REPORT INFORMATION
  Report Type: Spontaneous
  Country: GB (occurrence: GB)
  Receive Date: 20190510
  Receipt Date: 20190510
  Transmission Date: 20190711
  Serious: Yes (Other)
  Sender: FDA-Public Use
  Company Number: GB-TEVA-2019-GB-1047535

PATIENT
  Age: 67 Year
  Sex: Female
  Weight: 78.01 kg

DRUGS (8)
  1. FUCITHALMIC [Concomitant]
     Active Substance: FUSIDIC ACID
     Indication: CONJUNCTIVITIS
  2. ALLIUM SATIVUM [Concomitant]
  3. POTASSIUM [Concomitant]
     Active Substance: POTASSIUM
  4. EUPHRASIA OFFICINALIS [Concomitant]
  5. COLECALCIFEROL [Concomitant]
     Active Substance: CHOLECALCIFEROL
  6. KRILL OIL [Concomitant]
     Active Substance: DIETARY SUPPLEMENT
  7. CHLORAMPHENICOL [Suspect]
     Active Substance: CHLORAMPHENICOL
     Indication: CONJUNCTIVITIS
     Route: 061
     Dates: start: 20180401, end: 20190402
  8. LOSARTAN. [Concomitant]
     Active Substance: LOSARTAN

REACTIONS (6)
  - Erythema [Recovered/Resolved]
  - Hypersomnia [Recovered/Resolved]
  - Eye pain [Recovered/Resolved]
  - Facial pain [Recovered/Resolved]
  - Swelling of eyelid [Recovered/Resolved]
  - Feeling abnormal [Recovered/Resolved]

NARRATIVE: CASE EVENT DATE: 20190401
